FAERS Safety Report 7675779-6 (Version None)
Quarter: 2011Q3

REPORT INFORMATION
  Report Type: 
  Country: None (occurrence: None)
  Receive Date: 20110810
  Receipt Date: 20110802
  Transmission Date: 20111222
  Serious: Yes (Other)
  Sender: FDA-Public Use
  Company Number: US-RB-025862-11

PATIENT
  Age: 30 Year
  Sex: Female

DRUGS (2)
  1. PAXIL [Concomitant]
     Indication: DEPRESSION
     Dosage: DOSAGE UNKNOWN.
     Dates: start: 20080101, end: 20090101
  2. SUBUTEX [Suspect]
     Indication: PRODUCT USED FOR UNKNOWN INDICATION
     Route: 060
     Dates: start: 20090402, end: 20090618

REACTIONS (2)
  - MATERNAL EXPOSURE DURING PREGNANCY [None]
  - PLACENTA PRAEVIA [None]
